FAERS Safety Report 7814173-1 (Version None)
Quarter: 2011Q4

REPORT INFORMATION
  Report Type: 
  Country: None (occurrence: None)
  Receive Date: 20111014
  Receipt Date: 20111005
  Transmission Date: 20120403
  Serious: Yes (Hospitalization)
  Sender: FDA-Public Use
  Company Number: RO-NOVOPROD-335505

PATIENT

DRUGS (10)
  1. BLINDED LIRAGLUTIDE FLEXPEN [Suspect]
     Indication: TYPE 2 DIABETES MELLITUS
     Dosage: 0.6 MG, QD
     Route: 058
     Dates: start: 20110908
  2. BLINDED UNKNOWN [Suspect]
     Indication: TYPE 2 DIABETES MELLITUS
     Dosage: 0.6 MG, QD
     Route: 058
     Dates: start: 20110908
  3. BLINDED PLACEBO RUN IN [Suspect]
  4. BLINDED PLACEBO FLEXPEN [Suspect]
     Indication: TYPE 2 DIABETES MELLITUS
     Dosage: 0.6 MG, QD
     Route: 058
     Dates: start: 20110908
  5. BLINDED UNKNOWN [Suspect]
  6. BLINDED PLACEBO RUN IN [Suspect]
     Indication: TYPE 2 DIABETES MELLITUS
     Dosage: 0.6 MG, QD
     Route: 058
     Dates: start: 20110908
  7. BLINDED LIRAGLUTIDE FLEXPEN [Suspect]
  8. BLINDED NO DRUG GIVEN [Suspect]
     Indication: TYPE 2 DIABETES MELLITUS
     Dosage: 0.6 MG, QD
     Route: 058
     Dates: start: 20110908
  9. BLINDED NO DRUG GIVEN [Suspect]
  10. BLINDED PLACEBO FLEXPEN [Suspect]

REACTIONS (1)
  - GASTRITIS [None]
